FAERS Safety Report 4626933-9 (Version None)
Quarter: 2005Q2

REPORT INFORMATION
  Report Type: 
  Country: None (occurrence: None)
  Receive Date: 20050405
  Receipt Date: 20050330
  Transmission Date: 20051028
  Serious: Yes (Other)
  Sender: FDA-Public Use
  Company Number: US-MERCK-0504USA00153

PATIENT
  Sex: Female

DRUGS (2)
  1. VIOXX [Suspect]
     Indication: PAIN IN EXTREMITY
     Route: 048
     Dates: start: 20011001, end: 20020801
  2. VIOXX [Suspect]
     Route: 048
     Dates: start: 20011001, end: 20020801

REACTIONS (1)
  - MYOCARDIAL INFARCTION [None]
